FAERS Safety Report 10159399 (Version 1)
Quarter: 2014Q2

REPORT INFORMATION
  Report Type: Spontaneous
  Country: US (occurrence: None)
  Receive Date: 20140507
  Receipt Date: 20140507
  Transmission Date: 20141212
  Serious: Yes (Disabling)
  Sender: FDA-Public Use
  Company Number: None

PATIENT
  Age: 51 Year
  Sex: Female

DRUGS (3)
  1. DULOXETINE [Suspect]
     Indication: NEURALGIA
     Route: 048
     Dates: start: 20140414, end: 20140505
  2. DULOXETINE [Suspect]
     Indication: COMPLEX REGIONAL PAIN SYNDROME
     Route: 048
     Dates: start: 20140414, end: 20140505
  3. DULOXETINE [Suspect]
     Route: 048
     Dates: start: 20140414, end: 20140505

REACTIONS (4)
  - Drug ineffective [None]
  - Product substitution issue [None]
  - Neuralgia [None]
  - Disease recurrence [None]
